FAERS Safety Report 23947720 (Version 1)
Quarter: 2024Q2

REPORT INFORMATION
  Report Type: Spontaneous
  Country: CA (occurrence: CA)
  Receive Date: 20240606
  Receipt Date: 20240606
  Transmission Date: 20240716
  Serious: Yes (Other)
  Sender: FDA-Public Use
  Company Number: CA-GREER Laboratories, Inc.-2157869

PATIENT
  Age: 32 Year
  Sex: Female

DRUGS (9)
  1. AGROSTIS GIGANTEA POLLEN\DACTYLIS GLOMERATA POLLEN\PHLEUM PRATENSE POL [Suspect]
     Active Substance: AGROSTIS GIGANTEA POLLEN\DACTYLIS GLOMERATA POLLEN\PHLEUM PRATENSE POLLEN\POA PRATENSIS POLLEN
     Indication: Product used for unknown indication
     Route: 058
     Dates: start: 20230612
  2. 11 TREE POLLEN MIX [Suspect]
     Active Substance: ACER SACCHARUM POLLEN\BETULA NIGRA POLLEN\CARYA OVATA POLLEN\FAGUS GRANDIFOLIA POLLEN\FRAXINUS AMERI
     Route: 058
     Dates: start: 20230612
  3. CATTLE EPITHELIA [Suspect]
     Active Substance: BOS TAURUS SKIN
     Route: 058
     Dates: start: 20230612
  4. HORSE EPITHELIA [Suspect]
     Active Substance: EQUUS CABALLUS SKIN
     Route: 058
     Dates: start: 20230612
  5. ALTERNARIA ALTERNATA [Suspect]
     Active Substance: ALTERNARIA ALTERNATA
     Route: 058
     Dates: start: 20230612
  6. STANDARDIZED MITE MIX [Suspect]
     Active Substance: DERMATOPHAGOIDES FARINAE\DERMATOPHAGOIDES PTERONYSSINUS
     Route: 058
     Dates: start: 20230612
  7. DOG EPITHELIA [Suspect]
     Active Substance: CANIS LUPUS FAMILIARIS SKIN
     Route: 058
     Dates: start: 20230612
  8. DOG EPITHELIA [Suspect]
     Active Substance: CANIS LUPUS FAMILIARIS SKIN
     Route: 058
     Dates: start: 20230612
  9. STANDARDIZED CAT HAIR [Suspect]
     Active Substance: FELIS CATUS HAIR
     Route: 058
     Dates: start: 20230612

REACTIONS (2)
  - Anaphylactic reaction [Recovered/Resolved]
  - Incorrect dose administered [Recovered/Resolved]

NARRATIVE: CASE EVENT DATE: 20240422
